FAERS Safety Report 9795648 (Version 7)
Quarter: 2018Q2

REPORT INFORMATION
  Report Type: Spontaneous
  Country: US (occurrence: US)
  Receive Date: 20140103
  Receipt Date: 20180608
  Transmission Date: 20180711
  Serious: Yes (Hospitalization, Other)
  Sender: FDA-Public Use
  Company Number: US-PFIZER INC-2014000658

PATIENT
  Age: 72 Year
  Sex: Female
  Weight: 96.16 kg

DRUGS (1)
  1. XELJANZ [Suspect]
     Active Substance: TOFACITINIB CITRATE
     Indication: RHEUMATOID ARTHRITIS
     Dosage: 5 MG, 2X/DAY
     Route: 048
     Dates: start: 201307

REACTIONS (12)
  - Lung disorder [Unknown]
  - Localised infection [Unknown]
  - Gait disturbance [Unknown]
  - Loss of consciousness [Unknown]
  - Cardiac disorder [Unknown]
  - Femur fracture [Unknown]
  - Hypoaesthesia [Unknown]
  - Speech disorder [Unknown]
  - Pain [Unknown]
  - Pulmonary oedema [Unknown]
  - Joint injury [Unknown]
  - Drug ineffective [Unknown]

NARRATIVE: CASE EVENT DATE: 201607
